FAERS Safety Report 14470560 (Version 3)
Quarter: 2018Q1

REPORT INFORMATION
  Report Type: Report from Study
  Country: US (occurrence: US)
  Receive Date: 20180131
  Receipt Date: 20180208
  Transmission Date: 20180509
  Serious: No
  Sender: FDA-Public Use
  Company Number: PHEH2018US003639

PATIENT
  Sex: Male

DRUGS (1)
  1. OMNITROPE [Suspect]
     Active Substance: SOMATROPIN
     Indication: HYPOPITUITARISM
     Dosage: 0.4 MG, QD
     Route: 058

REACTIONS (4)
  - Needle issue [Unknown]
  - Device leakage [Unknown]
  - Injury associated with device [Unknown]
  - Injection site pain [Unknown]
